FAERS Safety Report 10085602 (Version 3)
Quarter: 2014Q2

REPORT INFORMATION
  Report Type: Spontaneous
  Country: IT (occurrence: IT)
  Receive Date: 20140418
  Receipt Date: 20140509
  Transmission Date: 20141212
  Serious: Yes (Hospitalization)
  Sender: FDA-Public Use
  Company Number: IT-BRISTOL-MYERS SQUIBB COMPANY-20218988

PATIENT
  Age: 85 Year
  Sex: Female

DRUGS (10)
  1. COUMADIN TABS 5 MG [Suspect]
     Dates: start: 20130101, end: 20131109
  2. ACETYLSALICYLIC ACID [Suspect]
     Dates: start: 20130101, end: 20131109
  3. ESOMEPRAZOLE SODIUM [Concomitant]
  4. BISOPROLOL HEMIFUMARATE [Concomitant]
  5. ENALAPRIL MALEATE [Concomitant]
  6. SERTRALINE HCL [Concomitant]
  7. CALCITRIOL [Concomitant]
  8. NITROGLYCERIN [Concomitant]
  9. GARDENALE [Concomitant]
     Dosage: 100MG TABS
  10. ENTACT [Concomitant]
     Dosage: 10 MG TABS

REACTIONS (1)
  - Melaena [Unknown]
